FAERS Safety Report 20487549 (Version 1)
Quarter: 2022Q1

REPORT INFORMATION
  Report Type: Spontaneous
  Country: US (occurrence: US)
  Receive Date: 20220218
  Receipt Date: 20220218
  Transmission Date: 20220423
  Serious: No
  Sender: FDA-Public Use
  Company Number: US-BRISTOL-MYERS SQUIBB COMPANY-BMS-2022-023897

PATIENT
  Age: 56 Year
  Sex: Male
  Weight: 61.224 kg

DRUGS (1)
  1. ELIQUIS [Suspect]
     Active Substance: APIXABAN
     Indication: Embolism venous
     Dosage: UNK UNK, BID
     Route: 048
     Dates: start: 2020

REACTIONS (1)
  - Product storage error [Unknown]
